FAERS Safety Report 23820472 (Version 1)
Quarter: 2024Q2

REPORT INFORMATION
  Report Type: Spontaneous
  Country: US (occurrence: None)
  Receive Date: 20240503
  Receipt Date: 20240503
  Transmission Date: 20240716
  Serious: Yes (Death)
  Sender: FDA-Public Use
  Company Number: None

PATIENT
  Age: 62 Year
  Sex: Male

DRUGS (5)
  1. TIVICAY [Suspect]
     Active Substance: DOLUTEGRAVIR SODIUM
     Indication: HIV infection
     Dosage: 50 MG DAILY ORAL
     Route: 048
     Dates: start: 20240301, end: 20240503
  2. SYMTUZA [Suspect]
     Active Substance: COBICISTAT\DARUNAVIR\EMTRICITABINE\TENOFOVIR ALAFENAMIDE
     Indication: HIV infection
     Dosage: 800 MG DAILY ORAL
     Route: 048
     Dates: start: 20240301, end: 20240503
  3. SULFAMETH/TRIMETH 800/160 [Concomitant]
     Dates: start: 20240301, end: 20240503
  4. AZITHROMYCIN 600 [Concomitant]
     Dates: start: 20240301, end: 20240503
  5. NYSTATIN [Concomitant]
     Active Substance: NYSTATIN
     Dates: start: 20240301, end: 20240503

REACTIONS (1)
  - Death [None]

NARRATIVE: CASE EVENT DATE: 20240502
